FAERS Safety Report 18695618 (Version 1)
Quarter: 2021Q1

REPORT INFORMATION
  Report Type: Spontaneous
  Country: US (occurrence: US)
  Receive Date: 20210104
  Receipt Date: 20210104
  Transmission Date: 20210419
  Serious: No
  Sender: FDA-Public Use
  Company Number: None

PATIENT
  Age: 91 Year
  Sex: Female
  Weight: 38.6 kg

DRUGS (1)
  1. BAMLANIVIMAB. [Suspect]
     Active Substance: BAMLANIVIMAB
     Route: 041
     Dates: start: 20201230, end: 20201230

REACTIONS (4)
  - Malaise [None]
  - Vision blurred [None]
  - Infusion related reaction [None]
  - Tremor [None]

NARRATIVE: CASE EVENT DATE: 20201230
